FAERS Safety Report 24055030 (Version 4)
Quarter: 2025Q2

REPORT INFORMATION
  Report Type: Spontaneous
  Country: IT (occurrence: IT)
  Receive Date: 20240705
  Receipt Date: 20250620
  Transmission Date: 20250716
  Serious: Yes (Other)
  Sender: ORGANON
  Company Number: IT-DOCGEN-2403992

PATIENT
  Age: 64 Year
  Sex: Female

DRUGS (11)
  1. FORMOTEROL FUMARATE\MOMETASONE FUROATE [Suspect]
     Active Substance: FORMOTEROL FUMARATE\MOMETASONE FUROATE
     Indication: Chronic rhinosinusitis with nasal polyps
     Dosage: SPRAY
     Route: 045
  2. MONTELUKAST SODIUM [Suspect]
     Active Substance: MONTELUKAST SODIUM
     Route: 065
  3. BECLOMETHASONE DIPROPIONATE\FORMOTEROL [Suspect]
     Active Substance: BECLOMETHASONE DIPROPIONATE\FORMOTEROL
     Indication: Chronic rhinosinusitis with nasal polyps
     Dosage: RECEIVED 800/24 ?G/DAY
  4. PREDNISONE [Suspect]
     Active Substance: PREDNISONE
     Indication: Eosinophilia
     Route: 048
  5. PREDNISONE [Suspect]
     Active Substance: PREDNISONE
     Indication: Chronic rhinosinusitis with nasal polyps
     Route: 048
  6. PREDNISONE [Suspect]
     Active Substance: PREDNISONE
     Indication: Eosinophilia
  7. TIOTROPIUM BROMIDE [Suspect]
     Active Substance: TIOTROPIUM BROMIDE
     Indication: Chronic rhinosinusitis with nasal polyps
     Dosage: 5 MICROGRAM, QD
     Route: 065
  8. METHYLPREDNISOLONE [Suspect]
     Active Substance: METHYLPREDNISOLONE
     Indication: Eosinophilia
     Dosage: RECEIVED FOR 3 DAYS
     Route: 042
  9. ALBUTEROL [Concomitant]
     Active Substance: ALBUTEROL
     Indication: Chronic rhinosinusitis with nasal polyps
  10. DUPILUMAB [Concomitant]
     Active Substance: DUPILUMAB
     Indication: Chronic rhinosinusitis with nasal polyps
     Route: 058
  11. DUPILUMAB [Concomitant]
     Active Substance: DUPILUMAB
     Route: 058
     Dates: start: 20230220

REACTIONS (3)
  - Thrombosis [Unknown]
  - Drug ineffective [Unknown]
  - Therapy partial responder [Unknown]
